FAERS Safety Report 15096433 (Version 1)
Quarter: 2018Q3

REPORT INFORMATION
  Report Type: Spontaneous
  Country: CA (occurrence: CA)
  Receive Date: 20180702
  Receipt Date: 20180702
  Transmission Date: 20181010
  Serious: Yes (Other)
  Sender: FDA-Public Use
  Company Number: CA-ALK-ABELLO A/S-2018AA002000

PATIENT

DRUGS (1)
  1. RAGWITEK [Suspect]
     Active Substance: AMBROSIA ARTEMISIIFOLIA POLLEN
     Indication: SEASONAL ALLERGY
     Dosage: 12 AMB A 1 UNITS
     Dates: start: 20180417

REACTIONS (3)
  - Wheezing [Unknown]
  - Dyspnoea [Unknown]
  - Dysphonia [Unknown]

NARRATIVE: CASE EVENT DATE: 201806
